FAERS Safety Report 7108176-2 (Version None)
Quarter: 2010Q4

REPORT INFORMATION
  Report Type: 
  Country: None (occurrence: None)
  Receive Date: 20101117
  Receipt Date: 20101115
  Transmission Date: 20110411
  Serious: Yes (Other)
  Sender: FDA-Public Use
  Company Number: ES-ROXANE LABORATORIES, INC.-2010-RO-01503RO

PATIENT
  Age: 54 Year
  Sex: Female
  Weight: 68 kg

DRUGS (5)
  1. PROPRANOLOL [Suspect]
     Indication: SUPRAVENTRICULAR TACHYCARDIA
     Dosage: 60 MG
     Route: 048
  2. RIBAVIRIN [Suspect]
     Indication: HEPATITIS C
     Dosage: 1000 MG
     Route: 048
  3. PEGINTERFERON ALFA-2A [Suspect]
     Indication: HEPATITIS C
     Route: 058
  4. LORATADINE [Suspect]
     Indication: RASH PRURITIC
     Dosage: 10 MG
     Route: 048
  5. HYDROXYZINE [Suspect]
     Indication: RASH PRURITIC
     Dosage: 25 MG
     Route: 048

REACTIONS (2)
  - ANGIOEDEMA [None]
  - RASH PRURITIC [None]
